FAERS Safety Report 12126061 (Version 3)
Quarter: 2016Q2

REPORT INFORMATION
  Report Type: Spontaneous
  Country: AR (occurrence: AR)
  Receive Date: 20160229
  Receipt Date: 20160413
  Transmission Date: 20160815
  Serious: Yes (Hospitalization, Other)
  Sender: FDA-Public Use
  Company Number: PHHY2016AR026210

PATIENT
  Age: 56 Year
  Sex: Male

DRUGS (2)
  1. TASIGNA [Suspect]
     Active Substance: NILOTINIB
     Dosage: 400 MG, Q12H
     Route: 048
     Dates: end: 20160224
  2. TASIGNA [Suspect]
     Active Substance: NILOTINIB
     Indication: CHRONIC MYELOID LEUKAEMIA
     Dosage: 400 MG, Q12H
     Route: 065
     Dates: start: 20100120, end: 20160215

REACTIONS (7)
  - Cerebrovascular accident [Unknown]
  - Angina pectoris [Unknown]
  - Hyperhidrosis [Unknown]
  - Transient ischaemic attack [Unknown]
  - Nausea [Unknown]
  - Vomiting [Unknown]
  - Acute myocardial infarction [Unknown]

NARRATIVE: CASE EVENT DATE: 20160224
